FAERS Safety Report 7186615-9 (Version None)
Quarter: 2010Q4

REPORT INFORMATION
  Report Type: 
  Country: None (occurrence: None)
  Receive Date: 20101222
  Receipt Date: 20100624
  Transmission Date: 20110411
  Serious: No
  Sender: FDA-Public Use
  Company Number: US-AMGEN-KDL419034

PATIENT

DRUGS (2)
  1. ENBREL [Suspect]
     Indication: PSORIATIC ARTHROPATHY
     Dosage: 50 MG, QWK
     Route: 058
     Dates: start: 20100505
  2. METHOTREXATE [Concomitant]
     Dosage: 15 MG, QWK

REACTIONS (5)
  - HEADACHE [None]
  - OSTEOARTHRITIS [None]
  - PSORIASIS [None]
  - PSORIATIC ARTHROPATHY [None]
  - STRESS URINARY INCONTINENCE [None]
